FAERS Safety Report 6164663-5 (Version None)
Quarter: 2009Q2

REPORT INFORMATION
  Report Type: 
  Country: None (occurrence: None)
  Receive Date: 20090423
  Receipt Date: 20090417
  Transmission Date: 20091009
  Serious: Yes (Death, Other)
  Sender: FDA-Public Use
  Company Number: AU-CELGENEUS-008-20785-09041777

PATIENT

DRUGS (4)
  1. THALIDOMIDE [Suspect]
     Indication: MULTIPLE MYELOMA
     Route: 048
     Dates: start: 20020101, end: 20050301
  2. THALIDOMIDE [Suspect]
     Route: 048
     Dates: start: 20020101, end: 20050301
  3. THALIDOMIDE [Suspect]
     Dosage: 200 MG TO 100 MG, 100 MG TO 100 MG ON ALTERNATE DAYS WHEN ADVERSE EVENTS OCCURRED
     Route: 048
     Dates: start: 20020101, end: 20050301
  4. PREDNISOLONE [Suspect]
     Indication: MULTIPLE MYELOMA
     Route: 065
     Dates: start: 20020101, end: 20050301

REACTIONS (27)
  - BLOOD CALCIUM ABNORMAL [None]
  - CARDIAC DISORDER [None]
  - CONSTIPATION [None]
  - CUSHINGOID [None]
  - DEATH [None]
  - DIARRHOEA [None]
  - DISEASE PROGRESSION [None]
  - DIZZINESS [None]
  - DYSPEPSIA [None]
  - FATIGUE [None]
  - HYPERGLYCAEMIA [None]
  - INFECTION [None]
  - INNER EAR DISORDER [None]
  - INSOMNIA [None]
  - LETHARGY [None]
  - MOOD ALTERED [None]
  - MYOPATHY [None]
  - NAUSEA [None]
  - NEUROPATHY PERIPHERAL [None]
  - OCULAR TOXICITY [None]
  - OSTEONECROSIS [None]
  - RASH [None]
  - RENAL DISORDER [None]
  - THROMBOSIS [None]
  - TINNITUS [None]
  - TREMOR [None]
  - WEIGHT INCREASED [None]
